FAERS Safety Report 13693772 (Version 1)
Quarter: 2017Q2

REPORT INFORMATION
  Report Type: Spontaneous
  Country: US (occurrence: US)
  Receive Date: 20170626
  Receipt Date: 20170626
  Transmission Date: 20170830
  Serious: No
  Sender: FDA-Public Use
  Company Number: None

PATIENT
  Age: 84 Year
  Sex: Female
  Weight: 50.4 kg

DRUGS (7)
  1. JANUVIA [Suspect]
     Active Substance: SITAGLIPTIN PHOSPHATE
     Dosage: ?          OTHER DOSE:MG;?
     Route: 049
     Dates: start: 20170524, end: 20170619
  2. CHOLESTOFF [Concomitant]
  3. IRBESARTAN. [Concomitant]
     Active Substance: IRBESARTAN
  4. GLIPIZIDE. [Concomitant]
     Active Substance: GLIPIZIDE
  5. ASTAXANTHING [Concomitant]
  6. COQ10 [Concomitant]
     Active Substance: UBIDECARENONE
  7. NORVASC [Concomitant]
     Active Substance: AMLODIPINE BESYLATE

REACTIONS (1)
  - Cough [None]

NARRATIVE: CASE EVENT DATE: 20170523
